FAERS Safety Report 8408767-2 (Version None)
Quarter: 2012Q2

REPORT INFORMATION
  Report Type: 
  Country: None (occurrence: None)
  Receive Date: 20120604
  Receipt Date: 20120522
  Transmission Date: 20120825
  Serious: Yes (Other)
  Sender: FDA-Public Use
  Company Number: DE-ELI_LILLY_AND_COMPANY-DE201205008057

PATIENT
  Age: 69 Year
  Sex: Male

DRUGS (1)
  1. OLANZAPINE [Suspect]

REACTIONS (2)
  - HYPOTHERMIA [None]
  - ATRIOVENTRICULAR BLOCK [None]
